FAERS Safety Report 8225151-5 (Version None)
Quarter: 2012Q1

REPORT INFORMATION
  Report Type: 
  Country: None (occurrence: None)
  Receive Date: 20120307
  Receipt Date: 20090622
  Transmission Date: 20120608
  Serious: No
  Sender: FDA-Public Use
  Company Number: PHEH2009US06993

PATIENT
  Age: 64 Year
  Sex: Male

DRUGS (1)
  1. AFINITOR [Suspect]
     Indication: RENAL CELL CARCINOMA
     Dosage: 10MG DAILY, ORAL
     Route: 048

REACTIONS (4)
  - COUGH [None]
  - HEADACHE [None]
  - PYREXIA [None]
  - PRODUCTIVE COUGH [None]
